FAERS Safety Report 22045694 (Version 4)
Quarter: 2023Q2

REPORT INFORMATION
  Report Type: Spontaneous
  Country: FR (occurrence: FR)
  Receive Date: 20230228
  Receipt Date: 20230420
  Transmission Date: 20230722
  Serious: Yes (Hospitalization, Other)
  Sender: FDA-Public Use
  Company Number: FR-ALNYLAM PHARMACEUTICALS, INC.-ALN-2023-000823

PATIENT

DRUGS (7)
  1. GIVLAARI [Suspect]
     Active Substance: GIVOSIRAN SODIUM
     Indication: Porphyria acute
     Dosage: 2.5 MILLIGRAM/KILOGRAM
     Route: 058
     Dates: start: 202002
  2. GIVLAARI [Suspect]
     Active Substance: GIVOSIRAN SODIUM
     Dosage: 2.5 MILLIGRAM/KILOGRAM
     Route: 058
     Dates: start: 20221128
  3. GIVLAARI [Suspect]
     Active Substance: GIVOSIRAN SODIUM
     Dosage: 2.5 MILLIGRAM/KILOGRAM
     Route: 058
     Dates: start: 20230126
  4. METHYLPREDNISOLONE [Concomitant]
     Active Substance: METHYLPREDNISOLONE
     Indication: Blood corticosterone
     Dosage: 30 MILLIGRAM, QD
     Route: 065
     Dates: start: 20230210
  5. LOVENOX [Concomitant]
     Active Substance: ENOXAPARIN SODIUM
     Indication: Anticoagulant therapy
     Dosage: UNK
     Route: 065
  6. LEVOFLOXACIN [Concomitant]
     Active Substance: LEVOFLOXACIN
     Indication: Antibiotic therapy
     Dosage: UNK
     Route: 065
  7. CORDARONE [Concomitant]
     Active Substance: AMIODARONE HYDROCHLORIDE
     Indication: Atrial fibrillation
     Dosage: UNK
     Route: 065
     Dates: start: 20230111

REACTIONS (6)
  - Vena cava thrombosis [Not Recovered/Not Resolved]
  - Laryngeal oedema [Unknown]
  - Acute kidney injury [Not Recovered/Not Resolved]
  - Hyperhomocysteinaemia [Not Recovered/Not Resolved]
  - Hypernatraemia [Unknown]
  - Haematoma muscle [Recovered/Resolved with Sequelae]

NARRATIVE: CASE EVENT DATE: 20200717
